FAERS Safety Report 5343466-5 (Version None)
Quarter: 2007Q2

REPORT INFORMATION
  Report Type: 
  Country: None (occurrence: None)
  Receive Date: 20070604
  Receipt Date: 20070522
  Transmission Date: 20071010
  Serious: Yes (Hospitalization)
  Sender: FDA-Public Use
  Company Number: PHHO2007BE08657

PATIENT
  Age: 41 Year
  Sex: Male

DRUGS (1)
  1. *CGP 57148B* [Suspect]
     Indication: CHRONIC MYELOID LEUKAEMIA
     Dosage: 400 MG, QD
     Route: 048

REACTIONS (5)
  - BACK PAIN [None]
  - DYSURIA [None]
  - HAEMATURIA [None]
  - NEUTROPENIA [None]
  - PYREXIA [None]
